FAERS Safety Report 18970210 (Version 1)
Quarter: 2021Q1

REPORT INFORMATION
  Report Type: Report from Study
  Country: CA (occurrence: CA)
  Receive Date: 20210304
  Receipt Date: 20210304
  Transmission Date: 20210420
  Serious: Yes (Other)
  Sender: FDA-Public Use
  Company Number: CA-TAKEDA-2020TUS055456

PATIENT
  Age: 48 Year
  Sex: Female

DRUGS (1)
  1. IXAZOMIB [Suspect]
     Active Substance: IXAZOMIB
     Indication: KERATOPATHY
     Dosage: 4 MILLIGRAM
     Route: 048
     Dates: start: 20201111

REACTIONS (2)
  - Malignant neoplasm progression [Unknown]
  - Off label use [Unknown]
